FAERS Safety Report 8367014-0 (Version None)
Quarter: 2012Q2

REPORT INFORMATION
  Report Type: 
  Country: None (occurrence: None)
  Receive Date: 20120515
  Receipt Date: 20120515
  Transmission Date: 20120825
  Serious: No
  Sender: FDA-Public Use
  Company Number: None

PATIENT
  Age: 53 Year
  Sex: Female

DRUGS (9)
  1. BUPROPION HCL [Concomitant]
  2. CANDESARTAN CILEXETIL [Concomitant]
  3. ESTROGENS CONJUGATED [Concomitant]
  4. SPIRONOLACTONE [Suspect]
  5. DILTIAZEM [Concomitant]
  6. TERAZOSIN HCL [Concomitant]
  7. AUGMENTIN '500' [Suspect]
     Dates: start: 20110505, end: 20110515
  8. NEBIVOLOL [Concomitant]
  9. RABEPRAZOLE SODIUM [Suspect]

REACTIONS (1)
  - HEPATITIS CHOLESTATIC [None]
